FAERS Safety Report 25999248 (Version 1)
Quarter: 2025Q4

REPORT INFORMATION
  Report Type: Spontaneous
  Country: US (occurrence: US)
  Receive Date: 20251105
  Receipt Date: 20251105
  Transmission Date: 20260118
  Serious: No
  Sender: BRISTOL-MYERS SQUIBB COMPANY
  Company Number: US-BRISTOL-MYERS SQUIBB COMPANY-2025-149930

PATIENT
  Age: 68 Year
  Sex: Female

DRUGS (1)
  1. REVLIMID [Suspect]
     Active Substance: LENALIDOMIDE
     Indication: Product used for unknown indication
     Route: 048

REACTIONS (8)
  - Diarrhoea [Unknown]
  - Dysphagia [Unknown]
  - Fatigue [Unknown]
  - Dysgeusia [Unknown]
  - Dyspepsia [Unknown]
  - Weight decreased [Unknown]
  - Ageusia [Unknown]
  - Muscle spasms [Unknown]
